FAERS Safety Report 5375592-9 (Version None)
Quarter: 2007Q2

REPORT INFORMATION
  Report Type: 
  Country: None (occurrence: None)
  Receive Date: 20070629
  Receipt Date: 20070619
  Transmission Date: 20071010
  Serious: Yes (Other)
  Sender: FDA-Public Use
  Company Number: US-PFIZER INC-2007051777

PATIENT
  Sex: Male
  Weight: 79.545 kg

DRUGS (1)
  1. CHANTIX [Suspect]

REACTIONS (11)
  - CHILLS [None]
  - DEPRESSION [None]
  - DIARRHOEA [None]
  - GINGIVAL PAIN [None]
  - HOSTILITY [None]
  - HOT FLUSH [None]
  - INSOMNIA [None]
  - IRRITABILITY [None]
  - NAUSEA [None]
  - STOMACH DISCOMFORT [None]
  - VOMITING [None]
